FAERS Safety Report 7425980-1 (Version None)
Quarter: 2011Q2

REPORT INFORMATION
  Report Type: 
  Country: None (occurrence: None)
  Receive Date: 20110420
  Receipt Date: 20110411
  Transmission Date: 20111010
  Serious: Yes (Other)
  Sender: FDA-Public Use
  Company Number: US-ASTRAZENECA-2011SE20924

PATIENT
  Sex: Male

DRUGS (1)
  1. NEXIUM [Suspect]
     Route: 048

REACTIONS (6)
  - IMPAIRED DRIVING ABILITY [None]
  - DYSPHAGIA [None]
  - WALKING AID USER [None]
  - JOINT SPRAIN [None]
  - ARTHROPATHY [None]
  - MALAISE [None]
